FAERS Safety Report 18548947 (Version 1)
Quarter: 2020Q4

REPORT INFORMATION
  Report Type: Spontaneous
  Country: US (occurrence: US)
  Receive Date: 20201126
  Receipt Date: 20201126
  Transmission Date: 20210114
  Serious: No
  Sender: FDA-Public Use
  Company Number: US-009507513-2011USA010855

PATIENT

DRUGS (5)
  1. BETAMETHASONE DIPROPIONATE (+) SALICYLIC ACID [Suspect]
     Active Substance: BETAMETHASONE DIPROPIONATE\SALICYLIC ACID
     Indication: ALOPECIA SCARRING
     Dosage: UNK
     Route: 003
  2. CLINDAMYCIN. [Concomitant]
     Active Substance: CLINDAMYCIN
     Indication: ALOPECIA SCARRING
  3. DERMOVATE [Concomitant]
     Active Substance: CLOBETASOL
     Indication: ALOPECIA SCARRING
  4. TETRACYCLINE [Concomitant]
     Active Substance: TETRACYCLINE
     Indication: ALOPECIA SCARRING
  5. CAPASAL [Concomitant]
     Indication: ALOPECIA SCARRING

REACTIONS (4)
  - Hair texture abnormal [Unknown]
  - Hair growth abnormal [Unknown]
  - Trichorrhexis [Unknown]
  - Drug ineffective [Unknown]
